FAERS Safety Report 9228818 (Version 1)
Quarter: 2013Q2

REPORT INFORMATION
  Report Type: Spontaneous
  Country: IQ (occurrence: IQ)
  Receive Date: 20130412
  Receipt Date: 20130412
  Transmission Date: 20140414
  Serious: Yes (Other)
  Sender: FDA-Public Use
  Company Number: IQ-ROCHE-1214045

PATIENT
  Sex: 0

DRUGS (2)
  1. PEGASYS [Suspect]
     Indication: CHRONIC HEPATITIS C
     Route: 058
     Dates: start: 20110101, end: 20120101
  2. RIBAVIRIN [Suspect]
     Indication: CHRONIC HEPATITIS C
     Dosage: 200 X 4
     Route: 048

REACTIONS (5)
  - Pancytopenia [Unknown]
  - Influenza like illness [Unknown]
  - Myalgia [Unknown]
  - Rash [Unknown]
  - Anaemia [Unknown]
